FAERS Safety Report 4933453-0 (Version None)
Quarter: 2006Q1

REPORT INFORMATION
  Report Type: 
  Country: None (occurrence: None)
  Receive Date: 20060301
  Receipt Date: 20060213
  Transmission Date: 20060701
  Serious: Yes (Other)
  Sender: FDA-Public Use
  Company Number: DSA_27814_2006

PATIENT
  Age: 65 Year
  Sex: Female
  Weight: 75.2971 kg

DRUGS (13)
  1. CARDIZEM CD [Suspect]
     Indication: ATRIAL FIBRILLATION
     Dosage: DF
     Dates: start: 20050126, end: 20050701
  2. CARDIZEM CD [Suspect]
     Indication: ATRIAL FIBRILLATION
     Dosage: DF Q DAY PO
     Route: 048
     Dates: start: 20050701, end: 20050101
  3. CARDIZEM LA [Suspect]
     Dosage: 360 MG Q DAY PO
     Route: 048
     Dates: end: 20060201
  4. CARDIZEM CD [Suspect]
     Dosage: 120 MG Q DAY PO
     Route: 048
     Dates: start: 20060101
  5. CARDIZEM CD [Suspect]
     Dosage: 180 MG Q DAY PO
     Route: 048
     Dates: start: 20060101, end: 20060224
  6. DIOVAN [Concomitant]
  7. DIOVAN [Concomitant]
  8. ALLEGRA /01314201/ [Concomitant]
  9. PLAVIX /01220701/ [Concomitant]
  10. ASPIRIN [Concomitant]
  11. COUMADIN [Concomitant]
  12. LIPITOR [Concomitant]
  13. NASONEX [Concomitant]

REACTIONS (8)
  - BLOOD PRESSURE INADEQUATELY CONTROLLED [None]
  - BLOOD PRESSURE INCREASED [None]
  - BLOOD PRESSURE SYSTOLIC INCREASED [None]
  - CARDIAC ARREST [None]
  - CORONARY ARTERY OCCLUSION [None]
  - CORONARY ARTERY STENOSIS [None]
  - HEART RATE DECREASED [None]
  - MYOCARDIAL INFARCTION [None]
